FAERS Safety Report 7969470-6 (Version None)
Quarter: 2011Q4

REPORT INFORMATION
  Report Type: 
  Country: None (occurrence: None)
  Receive Date: 20111212
  Receipt Date: 20111201
  Transmission Date: 20120403
  Serious: Yes (Hospitalization)
  Sender: FDA-Public Use
  Company Number: US-BIOGENIDEC-2011BI001037

PATIENT
  Age: 70 Year
  Sex: Female

DRUGS (2)
  1. AVONEX [Suspect]
     Indication: MULTIPLE SCLEROSIS
     Route: 030
     Dates: start: 20021003
  2. SOLU-MEDROL [Concomitant]
     Route: 042

REACTIONS (3)
  - CELLULITIS [None]
  - VASCULAR OPERATION [None]
  - HYPERGLYCAEMIA [None]
